FAERS Safety Report 8893363 (Version 1)
Quarter: 2012Q4

REPORT INFORMATION
  Report Type: 
  Country: US (occurrence: US)
  Receive Date: 20121108
  Receipt Date: 20121108
  Transmission Date: 20130627
  Serious: Yes (Other)
  Sender: FDA-Public Use
  Company Number: US-SANOFI-AVENTIS-2012SA080679

PATIENT
  Age: 51 Year
  Sex: Male

DRUGS (3)
  1. LANTUS [Suspect]
     Indication: TYPE II DIABETES MELLITUS
     Dosage: 58 units in the morning and 66 units
     Route: 058
  2. LANTUS [Suspect]
     Indication: TYPE II DIABETES MELLITUS
     Dosage: 58 units in the morning and 66 units
     Route: 058
  3. HUMALOG [Concomitant]

REACTIONS (5)
  - Coronary artery bypass [Unknown]
  - Nephropathy [Unknown]
  - Hypertension [Unknown]
  - Blood cholesterol increased [Unknown]
  - Glycosylated haemoglobin increased [Unknown]
